FAERS Safety Report 15319833 (Version 8)
Quarter: 2018Q4

REPORT INFORMATION
  Report Type: Spontaneous
  Country: US (occurrence: US)
  Receive Date: 20180827
  Receipt Date: 20181228
  Transmission Date: 20190204
  Serious: Yes (Other)
  Sender: FDA-Public Use
  Company Number: PHEH2018US033991

PATIENT
  Age: 52 Year
  Sex: Male
  Weight: 151.1 kg

DRUGS (5)
  1. METOLAZONE. [Suspect]
     Active Substance: METOLAZONE
     Indication: CONGESTIVE CARDIOMYOPATHY
     Dosage: 2.5 MG, QOD
     Route: 048
     Dates: start: 20180409
  2. BUMEX [Suspect]
     Active Substance: BUMETANIDE
     Indication: CONGESTIVE CARDIOMYOPATHY
     Dosage: 3 MG, UNK
     Route: 048
     Dates: start: 20180514
  3. SPIRONOLACTONE. [Suspect]
     Active Substance: SPIRONOLACTONE
     Indication: CONGESTIVE CARDIOMYOPATHY
     Dosage: 25 MG, UNK
     Route: 048
     Dates: start: 20140503
  4. ENTRESTO [Suspect]
     Active Substance: SACUBITRIL\VALSARTAN
     Indication: CARDIAC FAILURE
     Dosage: 2 DF, BID
     Route: 048
     Dates: start: 20180409, end: 20180613
  5. ENTRESTO [Suspect]
     Active Substance: SACUBITRIL\VALSARTAN
     Indication: CONGESTIVE CARDIOMYOPATHY

REACTIONS (6)
  - Brain natriuretic peptide increased [Unknown]
  - Dehydration [Unknown]
  - Blood creatinine increased [Recovered/Resolved]
  - Renal impairment [Recovered/Resolved]
  - Glomerular filtration rate decreased [Unknown]
  - Contraindicated product administered [Unknown]

NARRATIVE: CASE EVENT DATE: 20180611
